FAERS Safety Report 4886656-8 (Version None)
Quarter: 2006Q1

REPORT INFORMATION
  Report Type: 
  Country: None (occurrence: None)
  Receive Date: 20060119
  Receipt Date: 20051128
  Transmission Date: 20060701
  Serious: Yes (Death, Other)
  Sender: FDA-Public Use
  Company Number: MAG-2006-0000420

PATIENT
  Age: 44 Year
  Sex: Female

DRUGS (5)
  1. THEOPHYLLINE [Suspect]
     Indication: ASTHMA
     Dosage: ORAL
     Route: 048
  2. BECLOMETHASONE DIPROPIONATE [Concomitant]
  3. EBASTEL (EBASTINE) [Concomitant]
  4. KAKKON-TO (HERBAL EXTRACTS NOS) [Concomitant]
  5. BAKUMONDOUTO (HERBAL EXTRACTS NOS) [Concomitant]

REACTIONS (3)
  - GASTROINTESTINAL HAEMORRHAGE [None]
  - STATUS ASTHMATICUS [None]
  - SUDDEN DEATH [None]
